FAERS Safety Report 7150238-8 (Version None)
Quarter: 2010Q4

REPORT INFORMATION
  Report Type: 
  Country: None (occurrence: None)
  Receive Date: 20101126
  Receipt Date: 20101116
  Transmission Date: 20110411
  Serious: Yes (Hospitalization, Other)
  Sender: FDA-Public Use
  Company Number: 2010110037

PATIENT
  Age: 55 Year
  Sex: Male
  Weight: 56.6996 kg

DRUGS (5)
  1. ONSOLIS [Suspect]
     Indication: CANCER PAIN
     Dosage: TO TITRATED UP TO 4-200 MCG FILMS/DOSE (200 MCG, UP TO 4 TIMES DAILY), BU
     Route: 002
     Dates: start: 20101023
  2. MORPHINE [Concomitant]
  3. OXYCONTIN [Concomitant]
  4. PERCOCET [Concomitant]
  5. CHEMOTHERAPY [Concomitant]

REACTIONS (5)
  - BACK PAIN [None]
  - BLOOD CREATININE INCREASED [None]
  - DEHYDRATION [None]
  - DYSPNOEA [None]
  - HICCUPS [None]
